FAERS Safety Report 14416590 (Version 2)
Quarter: 2018Q1

REPORT INFORMATION
  Report Type: Report from Study
  Country: US (occurrence: US)
  Receive Date: 20180122
  Receipt Date: 20180220
  Transmission Date: 20180509
  Serious: No
  Sender: FDA-Public Use
  Company Number: US-AMGEN-USASL2018007776

PATIENT
  Age: 11 Year
  Sex: Female
  Weight: 45.35 kg

DRUGS (1)
  1. ENBREL [Suspect]
     Active Substance: ETANERCEPT
     Indication: PSORIASIS
     Dosage: 37.5 MG, 2 TIMES/WK
     Route: 065
     Dates: start: 20171214

REACTIONS (2)
  - Swelling [Recovered/Resolved]
  - Oropharyngeal pain [Recovered/Resolved]

NARRATIVE: CASE EVENT DATE: 20180118
